FAERS Safety Report 6551042-1 (Version None)
Quarter: 2010Q1

REPORT INFORMATION
  Report Type: 
  Country: None (occurrence: None)
  Receive Date: 20100125
  Receipt Date: 20100118
  Transmission Date: 20100710
  Serious: Yes (Hospitalization)
  Sender: FDA-Public Use
  Company Number: FR-AMGEN-QUU382377

PATIENT
  Sex: Male
  Weight: 40 kg

DRUGS (19)
  1. NEUPOGEN [Suspect]
     Indication: CHEMOTHERAPY
     Route: 042
     Dates: start: 20091021, end: 20091030
  2. TAZOCILLINE [Suspect]
     Indication: INFECTION
     Route: 042
     Dates: start: 20091021, end: 20091028
  3. AMBISOME [Suspect]
     Indication: INFECTION
     Route: 042
     Dates: start: 20091026
  4. FLAGYL [Concomitant]
     Route: 048
     Dates: start: 20091024
  5. AMIKIN [Concomitant]
     Route: 042
     Dates: start: 20091021
  6. TIENAM [Concomitant]
     Route: 042
     Dates: start: 20091028
  7. BACTRIM [Concomitant]
     Route: 048
     Dates: start: 20091023
  8. ZELITREX [Concomitant]
     Dates: start: 20091014
  9. LANSOPRAZOLE [Concomitant]
  10. PAROXETINE HCL [Concomitant]
  11. ONDANSETRON HCL [Concomitant]
  12. PURINETHOL [Concomitant]
  13. CHLORPROMAZINE HCL [Concomitant]
  14. NEXIUM [Concomitant]
  15. RIVOTRIL [Concomitant]
  16. INIPOMP [Concomitant]
  17. DOLIPRANE [Concomitant]
  18. ZOLOFT [Concomitant]
  19. XANAX [Concomitant]

REACTIONS (2)
  - CHOLESTASIS [None]
  - JAUNDICE [None]
